FAERS Safety Report 9840101 (Version 1)
Quarter: 2013Q4

REPORT INFORMATION
  Report Type: Spontaneous
  Country: US (occurrence: None)
  Receive Date: 20131211
  Receipt Date: 20131211
  Transmission Date: 20140711
  Serious: No
  Sender: FDA-Public Use
  Company Number: ALL1-2013-00155

PATIENT
  Age: 57 Year
  Sex: Female
  Weight: 85.7 kg

DRUGS (20)
  1. FIRAZYR [Suspect]
     Indication: ENZYME ABNORMALITY
     Dosage: 30 MG, AS REQ^D, SUBCUTANEOUS
     Route: 058
     Dates: start: 20130108, end: 20130108
  2. LEVOTHYROXINE (LEVOTHYROXINE) [Concomitant]
  3. ESTRADIOL(ESTRADIOL) [Concomitant]
  4. PAXIL(PIROXICAM) [Concomitant]
  5. PERCOCET(OXYCODONE HYDROCHLORIDE, PARACETAMOL) [Concomitant]
  6. HYDROCODONE(HYDROCODONE) [Concomitant]
  7. TIAZANIDINE(TIZANIDINE) [Concomitant]
  8. XANAZ(ALPRAZOLAM) [Concomitant]
  9. AMBIEN(ZOLPIDEM TARTRATE) [Concomitant]
  10. TAGAMET(CIMETIDINE) [Concomitant]
  11. LASIX(FUROSEMIDE) [Concomitant]
  12. POTASSIUM(POTASSIUM) [Concomitant]
  13. VITAMIN D (ERGOCALCIFEROL) [Concomitant]
  14. LORATADINE(LORATADINE) [Concomitant]
  15. ZYRECT(CETIRIZINE HYDROCHLORIDE) [Concomitant]
  16. SINGULAIR [Concomitant]
  17. SINEQUAN(DOXEPIN HYDROCHLORIDE) [Concomitant]
  18. FLONASE(FLUTICASONE PROPIONATE) [Concomitant]
  19. PROAIR (SALBUTAMOL SULFATE) [Concomitant]
  20. ASTRO (AZITHROMYCIN) [Concomitant]

REACTIONS (3)
  - Blood pressure increased [None]
  - Heart rate increased [None]
  - Injection site erythema [None]
